FAERS Safety Report 8129379-4 (Version None)
Quarter: 2012Q1

REPORT INFORMATION
  Report Type: 
  Country: None (occurrence: None)
  Receive Date: 20120103
  Receipt Date: 20110908
  Transmission Date: 20120608
  Serious: No
  Sender: FDA-Public Use
  Company Number: AE-2011-001276

PATIENT
  Age: 56 Year
  Sex: Male
  Weight: 83.0083 kg

DRUGS (6)
  1. INCIVEK [Suspect]
     Dosage: 2250 MG (750 MG, 3 IN 1 D), ORAL
     Route: 048
     Dates: start: 20110826
  2. COREG [Concomitant]
  3. PEGASYS [Concomitant]
  4. RIBAVIRIN [Concomitant]
  5. WARFARIN SODIUM [Concomitant]
  6. HYDROCODONE BITARTRATE [Concomitant]

REACTIONS (3)
  - NAUSEA [None]
  - ANTICOAGULATION DRUG LEVEL BELOW THERAPEUTIC [None]
  - RASH [None]
